FAERS Safety Report 23718353 (Version 1)
Quarter: 2024Q2

REPORT INFORMATION
  Report Type: Spontaneous
  Country: US (occurrence: None)
  Receive Date: 20240405
  Receipt Date: 20240405
  Transmission Date: 20240716
  Serious: Yes (Death, Other)
  Sender: FDA-Public Use
  Company Number: None

PATIENT
  Age: 80 Year
  Sex: Female

DRUGS (9)
  1. TADALAFIL [Suspect]
     Active Substance: TADALAFIL
     Indication: Pulmonary hypertension
     Dosage: 20MG QD ORAL?
     Route: 048
     Dates: start: 20200609, end: 20230521
  2. RIFAXIMIN [Concomitant]
     Active Substance: RIFAXIMIN
  3. POTASSIUM CHLORIDE [Concomitant]
     Active Substance: POTASSIUM CHLORIDE
  4. VITAMIN D3 [Concomitant]
     Active Substance: CHOLECALCIFEROL
  5. FUROSEMIDE [Concomitant]
     Active Substance: FUROSEMIDE
  6. ALVESCO HFA [Concomitant]
  7. HUMULIN N [Concomitant]
     Active Substance: INSULIN HUMAN
  8. CALCIUM CARBONATE [Concomitant]
     Active Substance: CALCIUM CARBONATE
  9. DOXORUBICIN [Concomitant]
     Active Substance: DOXORUBICIN

REACTIONS (4)
  - Fall [None]
  - Chest pain [None]
  - Back pain [None]
  - Rib fracture [None]

NARRATIVE: CASE EVENT DATE: 20230521
